FAERS Safety Report 9336545 (Version 1)
Quarter: 2013Q2

REPORT INFORMATION
  Report Type: Spontaneous
  Country: US (occurrence: US)
  Receive Date: 20130607
  Receipt Date: 20130607
  Transmission Date: 20140414
  Serious: No
  Sender: FDA-Public Use
  Company Number: US-PFIZER INC-2013170382

PATIENT
  Sex: Male

DRUGS (3)
  1. FLECTOR [Suspect]
     Indication: MUSCLE SPASMS
     Dosage: UNK
     Dates: start: 2007
  2. FLECTOR [Suspect]
     Indication: BACK PAIN
  3. IBUPROFEN [Concomitant]
     Dosage: UNK

REACTIONS (3)
  - Expired drug administered [Unknown]
  - Drug ineffective [Unknown]
  - Burning sensation [Unknown]
